FAERS Safety Report 9741468 (Version 2)
Quarter: 2013Q4

REPORT INFORMATION
  Report Type: Report from Study
  Country: BD (occurrence: BD)
  Receive Date: 20131209
  Receipt Date: 20131213
  Transmission Date: 20140711
  Serious: Yes (Death)
  Sender: FDA-Public Use
  Company Number: PHHY2013BD143552

PATIENT
  Age: 80 Year
  Sex: Female

DRUGS (1)
  1. EXELON PATCH [Suspect]
     Indication: DEMENTIA
     Dosage: 4.6 MG, DAILY
     Route: 062
     Dates: start: 201201

REACTIONS (1)
  - Parkinson^s disease [Fatal]
